FAERS Safety Report 5162238-8 (Version None)
Quarter: 2006Q4

REPORT INFORMATION
  Report Type: 
  Country: None (occurrence: None)
  Receive Date: 20061121
  Receipt Date: 20061106
  Transmission Date: 20070319
  Serious: Yes (Hospitalization)
  Sender: FDA-Public Use
  Company Number: 2006100035

PATIENT
  Age: 35 Year
  Sex: Female

DRUGS (6)
  1. ASTELIN [Suspect]
     Indication: RHINITIS
     Dosage: DAILY, IN
     Dates: start: 20000726, end: 20061005
  2. METOPROLOL TARTRATE [Concomitant]
  3. NASACORT [Concomitant]
  4. AMBIEN [Concomitant]
  5. BIRTH CONTROL PILLS [Concomitant]
  6. SONATA [Concomitant]

REACTIONS (7)
  - ATRIAL FIBRILLATION [None]
  - ATRIAL FLUTTER [None]
  - DIZZINESS [None]
  - MITRAL VALVE INCOMPETENCE [None]
  - MITRAL VALVE PROLAPSE [None]
  - SINUS BRADYCARDIA [None]
  - SYNCOPE [None]
